FAERS Safety Report 5861828-4 (Version None)
Quarter: 2008Q3

REPORT INFORMATION
  Report Type: 
  Country: None (occurrence: None)
  Receive Date: 20080827
  Receipt Date: 20080708
  Transmission Date: 20090109
  Serious: No
  Sender: FDA-Public Use
  Company Number: US-ABBOTT-08P-163-0461205-00

PATIENT
  Sex: Male
  Weight: 83.99 kg

DRUGS (4)
  1. COATED PDS [Suspect]
     Indication: LOW DENSITY LIPOPROTEIN INCREASED
     Dosage: COATED
     Route: 048
     Dates: start: 20080605, end: 20080706
  2. COATED PDS [Suspect]
     Indication: HIGH DENSITY LIPOPROTEIN DECREASED
     Dosage: UNCOATED
     Route: 048
     Dates: start: 20080706
  3. ACETYLSALICYLIC ACID SRT [Concomitant]
     Indication: FLUSHING
     Route: 048
     Dates: end: 20080620
  4. ACETYLSALICYLIC ACID SRT [Concomitant]
     Route: 048
     Dates: start: 20080620

REACTIONS (2)
  - DYSGEUSIA [None]
  - FLUSHING [None]
